FAERS Safety Report 9144334 (Version 3)
Quarter: 2013Q1

REPORT INFORMATION
  Report Type: Spontaneous
  Country: NL (occurrence: NL)
  Receive Date: 20130306
  Receipt Date: 20130326
  Transmission Date: 20140127
  Serious: Yes (Hospitalization)
  Sender: FDA-Public Use
  Company Number: NL-PFIZER INC-2013075846

PATIENT
  Sex: Male
  Weight: 4 kg

DRUGS (1)
  1. VENLAFAXINE HYDROCHLORIDE [Suspect]
     Dosage: 70 MG, 1X/DAY
     Route: 064
     Dates: start: 2012, end: 20130208

REACTIONS (2)
  - Maternal exposure during pregnancy [Recovered/Resolved]
  - Persistent foetal circulation [Recovered/Resolved]
